FAERS Safety Report 11043776 (Version 1)
Quarter: 2015Q2

REPORT INFORMATION
  Report Type: Spontaneous
  Country: AU (occurrence: AU)
  Receive Date: 20150417
  Receipt Date: 20150417
  Transmission Date: 20150821
  Serious: Yes (Hospitalization, Other)
  Sender: FDA-Public Use
  Company Number: AU-ROCHE-1563400

PATIENT
  Sex: Male

DRUGS (10)
  1. RITONAVIR. [Concomitant]
     Active Substance: RITONAVIR
  2. PROPANOLOL [Concomitant]
     Active Substance: PROPRANOLOL HYDROCHLORIDE
  3. METHADONE [Concomitant]
     Active Substance: METHADONE HYDROCHLORIDE
     Indication: DRUG DEPENDENCE
  4. RALTEGRAVIR [Concomitant]
     Active Substance: RALTEGRAVIR
  5. DARUNAVIR [Concomitant]
     Active Substance: DARUNAVIR
  6. RITUXIMAB [Suspect]
     Active Substance: RITUXIMAB
     Indication: CASTLEMAN^S DISEASE
     Route: 042
     Dates: start: 200806
  7. RITUXIMAB [Suspect]
     Active Substance: RITUXIMAB
     Route: 042
     Dates: start: 201211
  8. VALGANCICLOVIR [Suspect]
     Active Substance: VALGANCICLOVIR
     Indication: CASTLEMAN^S DISEASE
     Route: 065
  9. RITUXIMAB [Suspect]
     Active Substance: RITUXIMAB
     Route: 042
     Dates: start: 20140219
  10. LAMIVUDINE. [Concomitant]
     Active Substance: LAMIVUDINE

REACTIONS (11)
  - Vasculitis [Unknown]
  - Castleman^s disease [Unknown]
  - Thrombocytopenia [Unknown]
  - Septic shock [Unknown]
  - Disseminated intravascular coagulation [Unknown]
  - Infusion related reaction [Unknown]
  - Multi-organ failure [Unknown]
  - Mental disorder [Unknown]
  - Rash macular [Unknown]
  - Substance abuse [Unknown]
  - Drug ineffective [Unknown]

NARRATIVE: CASE EVENT DATE: 2014
